FAERS Safety Report 7654576-1 (Version None)
Quarter: 2011Q3

REPORT INFORMATION
  Report Type: 
  Country: None (occurrence: None)
  Receive Date: 20110803
  Receipt Date: 20110725
  Transmission Date: 20111222
  Serious: Yes (Disabling, Other)
  Sender: FDA-Public Use
  Company Number: JP-ASTRAZENECA-2010SE44595

PATIENT
  Age: 448 Month
  Sex: Female
  Weight: 62 kg

DRUGS (3)
  1. XYLOCAINE [Suspect]
     Dosage: UNKNOWN DOSE
     Route: 065
     Dates: start: 20100901, end: 20100901
  2. ROPIVACAINE HYDROCHLORIDE [Suspect]
     Indication: POSTOPERATIVE ANALGESIA
     Dosage: FENTANYL 10 ML + 0.2 % ANAPEINE 200 ML: 4 ML/HR AND BOLUS 3 ML EVERY 30 MIN.
     Route: 008
     Dates: start: 20100914, end: 20100916
  3. FENTANYL [Concomitant]
     Indication: POSTOPERATIVE ANALGESIA
     Dosage: FENTANYL 10 ML + 0.2 % ANAPEINE 200 ML: 4 ML/HR AND BOLUS 3 ML EVERY 30 MIN.
     Route: 008
     Dates: start: 20100914, end: 20100916

REACTIONS (2)
  - DIPLEGIA [None]
  - NERVOUS SYSTEM DISORDER [None]
